FAERS Safety Report 7517903-1 (Version None)
Quarter: 2011Q2

REPORT INFORMATION
  Report Type: 
  Country: None (occurrence: None)
  Receive Date: 20110527
  Receipt Date: 20110527
  Transmission Date: 20111010
  Serious: Yes (Other)
  Sender: FDA-Public Use
  Company Number: None

PATIENT
  Age: 15 Year
  Sex: Female

DRUGS (1)
  1. BESIVANCE [Suspect]
     Indication: EYE INFECTION BACTERIAL
     Dosage: 1 DROP TID OPHTHALMIC  USE ONLY ONCE
     Route: 047
     Dates: start: 20110525, end: 20110525

REACTIONS (2)
  - CONVULSION [None]
  - LOSS OF CONSCIOUSNESS [None]
